FAERS Safety Report 12781353 (Version 4)
Quarter: 2017Q4

REPORT INFORMATION
  Report Type: Spontaneous
  Country: FR (occurrence: FR)
  Receive Date: 20160926
  Receipt Date: 20171004
  Transmission Date: 20180320
  Serious: Yes (Disabling, Congenital Anomaly, Other)
  Sender: FDA-Public Use
  Company Number: FR-ABBVIE-16P-056-1738095-00

PATIENT
  Age: 36 Week
  Sex: Male

DRUGS (2)
  1. DEPAKINE CHRONO [Suspect]
     Active Substance: VALPROATE SODIUM
     Indication: PRODUCT USED FOR UNKNOWN INDICATION
     Route: 064
     Dates: start: 20060506, end: 20061120
  2. DEPAKINE CHRONO [Suspect]
     Active Substance: VALPROATE SODIUM
     Indication: MATERNAL EXPOSURE TIMING UNSPECIFIED
     Route: 064
     Dates: start: 20060326, end: 200604

REACTIONS (37)
  - Intellectual disability [Not Recovered/Not Resolved]
  - Abnormal behaviour [Unknown]
  - Hypertonic bladder [Not Recovered/Not Resolved]
  - Congenital infection [Unknown]
  - Cardiac murmur [Unknown]
  - Respiratory distress [Unknown]
  - Developmental delay [Not Recovered/Not Resolved]
  - Congenital foot malformation [Unknown]
  - Disturbance in attention [Unknown]
  - Premature baby [Unknown]
  - Gait disturbance [Unknown]
  - Strabismus [Unknown]
  - Ear infection [Recovered/Resolved]
  - Psychomotor retardation [Not Recovered/Not Resolved]
  - Enuresis [Not Recovered/Not Resolved]
  - Atrial septal defect [Not Recovered/Not Resolved]
  - Strabismus [Not Recovered/Not Resolved]
  - Hypertelorism of orbit [Unknown]
  - Atrial septal defect [Unknown]
  - Autism spectrum disorder [Not Recovered/Not Resolved]
  - Cerebral atrophy [Unknown]
  - Anxiety [Unknown]
  - Joint hyperextension [Unknown]
  - Dysmorphism [Unknown]
  - Posture abnormal [Unknown]
  - Benign enlargement of the subarachnoid spaces [Unknown]
  - Dysmorphism [Not Recovered/Not Resolved]
  - Knee deformity [Unknown]
  - Congenital oral malformation [Unknown]
  - Plagiocephaly [Unknown]
  - Fine motor skill dysfunction [Unknown]
  - Nasopharyngitis [Recovered/Resolved]
  - Hypoxic-ischaemic encephalopathy [Unknown]
  - Congenital foot malformation [Unknown]
  - Hypotonia [Unknown]
  - Foetal exposure during pregnancy [Unknown]
  - Foetal anticonvulsant syndrome [Unknown]

NARRATIVE: CASE EVENT DATE: 20061120
